FAERS Safety Report 19635882 (Version 1)
Quarter: 2021Q3

REPORT INFORMATION
  Report Type: Spontaneous
  Country: US (occurrence: US)
  Receive Date: 20210730
  Receipt Date: 20210730
  Transmission Date: 20211014
  Serious: Yes (Death, Life-Threatening, Hospitalization)
  Sender: FDA-Public Use
  Company Number: None

PATIENT
  Age: 58 Year
  Sex: Female
  Weight: 82.9 kg

DRUGS (4)
  1. BELATACEPT VIRAL 250 MG [Suspect]
     Active Substance: BELATACEPT
     Indication: LUNG TRANSPLANT
     Dosage: ?          OTHER FREQUENCY:DAY 0?DAY 84;?
     Route: 041
     Dates: start: 20200715, end: 20201007
  2. PREDNISONE. [Concomitant]
     Active Substance: PREDNISONE
  3. BELATACEPT VIRAL 250 MG [Suspect]
     Active Substance: BELATACEPT
     Indication: LUNG TRANSPLANT
     Dosage: ?          OTHER FREQUENCY:Q 28 DAYS;?
     Route: 041
     Dates: start: 20201102, end: 20210517
  4. TACROLIMUS. [Concomitant]
     Active Substance: TACROLIMUS

REACTIONS (5)
  - Hypoxia [None]
  - Pulse absent [None]
  - Ventricular tachycardia [None]
  - Haemoptysis [None]
  - Pulmonary haemorrhage [None]

NARRATIVE: CASE EVENT DATE: 20210729
